FAERS Safety Report 7248563-5 (Version None)
Quarter: 2011Q1

REPORT INFORMATION
  Report Type: 
  Country: None (occurrence: None)
  Receive Date: 20110128
  Receipt Date: 20100923
  Transmission Date: 20110831
  Serious: Yes (Other)
  Sender: FDA-Public Use
  Company Number: US-BAYER-201022222BCC

PATIENT
  Sex: Female
  Weight: 48.182 kg

DRUGS (1)
  1. BAYER ASPIRIN QUICK RELEASE CRYSTALS [Suspect]
     Indication: ANGINA PECTORIS

REACTIONS (1)
  - ANGINA PECTORIS [None]
